FAERS Safety Report 13019189 (Version 1)
Quarter: 2016Q4

REPORT INFORMATION
  Report Type: Spontaneous
  Country: US (occurrence: US)
  Receive Date: 20161212
  Receipt Date: 20161212
  Transmission Date: 20170207
  Serious: No
  Sender: FDA-Public Use
  Company Number: US-ROCHE-1833804

PATIENT
  Sex: Female

DRUGS (8)
  1. PENICILLINS [Concomitant]
     Active Substance: PENICILLIN
  2. FLEXERIL [Concomitant]
     Active Substance: CYCLOBENZAPRINE HYDROCHLORIDE
  3. CYMBALTA [Concomitant]
     Active Substance: DULOXETINE HYDROCHLORIDE
  4. LYRICA [Suspect]
     Active Substance: PREGABALIN
     Dosage: HS (HALF STRENGTH)
     Route: 048
     Dates: start: 20160811
  5. TOPAMAX [Concomitant]
     Active Substance: TOPIRAMATE
  6. CODEINE [Concomitant]
     Active Substance: CODEINE
  7. VALIUM [Suspect]
     Active Substance: DIAZEPAM
     Indication: PRODUCT USED FOR UNKNOWN INDICATION
     Route: 065
  8. LYRICA [Suspect]
     Active Substance: PREGABALIN
     Indication: NEURALGIA
     Dosage: HS (HALF STRENGTH)
     Route: 048
     Dates: start: 20141107

REACTIONS (2)
  - Hypersensitivity [Unknown]
  - Weight increased [Unknown]

NARRATIVE: CASE EVENT DATE: 20141107
